FAERS Safety Report 16181040 (Version 1)
Quarter: 2019Q2

REPORT INFORMATION
  Report Type: Spontaneous
  Country: IN (occurrence: IN)
  Receive Date: 20190410
  Receipt Date: 20190410
  Transmission Date: 20190711
  Serious: Yes (Life-Threatening, Hospitalization, Other)
  Sender: FDA-Public Use
  Company Number: IN-ELI_LILLY_AND_COMPANY-IN201904003471

PATIENT
  Age: 33 Year
  Sex: Male

DRUGS (21)
  1. SODIUM VALPROATE [Suspect]
     Active Substance: VALPROATE SODIUM
     Indication: AGGRESSION
  2. SODIUM VALPROATE [Suspect]
     Active Substance: VALPROATE SODIUM
     Indication: PSYCHOMOTOR HYPERACTIVITY
  3. OLANZAPINE. [Suspect]
     Active Substance: OLANZAPINE
     Indication: HALLUCINATION, AUDITORY
  4. OLANZAPINE. [Suspect]
     Active Substance: OLANZAPINE
     Indication: JUDGEMENT IMPAIRED
  5. TOPIRAMATE. [Suspect]
     Active Substance: TOPIRAMATE
     Indication: PERSONALITY CHANGE
     Dosage: 50 MG, BID
     Route: 065
  6. OLANZAPINE. [Suspect]
     Active Substance: OLANZAPINE
     Indication: PSYCHOMOTOR HYPERACTIVITY
     Dosage: 5 MG, BID
     Route: 065
  7. SODIUM VALPROATE [Suspect]
     Active Substance: VALPROATE SODIUM
     Indication: JUDGEMENT IMPAIRED
     Dosage: 500 MG, EVERY 8 HRS
     Route: 065
  8. TOPIRAMATE. [Suspect]
     Active Substance: TOPIRAMATE
     Indication: JUDGEMENT IMPAIRED
  9. SODIUM VALPROATE [Suspect]
     Active Substance: VALPROATE SODIUM
     Indication: DELUSION
  10. TOPIRAMATE. [Suspect]
     Active Substance: TOPIRAMATE
     Indication: AGGRESSION
  11. TOPIRAMATE. [Suspect]
     Active Substance: TOPIRAMATE
     Indication: LOGORRHOEA
  12. OLANZAPINE. [Suspect]
     Active Substance: OLANZAPINE
     Indication: PERSONALITY CHANGE
  13. OLANZAPINE. [Suspect]
     Active Substance: OLANZAPINE
     Indication: DELUSION
  14. OLANZAPINE. [Suspect]
     Active Substance: OLANZAPINE
     Indication: LOGORRHOEA
  15. SODIUM VALPROATE [Suspect]
     Active Substance: VALPROATE SODIUM
     Indication: HALLUCINATION, AUDITORY
  16. OLANZAPINE. [Suspect]
     Active Substance: OLANZAPINE
     Indication: AGGRESSION
  17. SODIUM VALPROATE [Suspect]
     Active Substance: VALPROATE SODIUM
     Indication: PERSONALITY CHANGE
  18. TOPIRAMATE. [Suspect]
     Active Substance: TOPIRAMATE
     Indication: PSYCHOMOTOR HYPERACTIVITY
  19. SODIUM VALPROATE [Suspect]
     Active Substance: VALPROATE SODIUM
     Indication: LOGORRHOEA
  20. TOPIRAMATE. [Suspect]
     Active Substance: TOPIRAMATE
     Indication: DELUSION
  21. TOPIRAMATE. [Suspect]
     Active Substance: TOPIRAMATE
     Indication: HALLUCINATION, AUDITORY

REACTIONS (1)
  - Stevens-Johnson syndrome [Unknown]
